FAERS Safety Report 6219069-7 (Version None)
Quarter: 2009Q2

REPORT INFORMATION
  Report Type: 
  Country: None (occurrence: None)
  Receive Date: 20090609
  Receipt Date: 20080201
  Transmission Date: 20091009
  Serious: Yes (Other)
  Sender: FDA-Public Use
  Company Number: US-ASTRAZENECA-2007UW05616

PATIENT
  Age: 11728 Day
  Sex: Female
  Weight: 106.6 kg

DRUGS (16)
  1. SEROQUEL [Suspect]
     Indication: BIPOLAR DISORDER
     Route: 048
     Dates: start: 20010301, end: 20020801
  2. SEROQUEL [Suspect]
     Dosage: 50-400 MG (FLUCTUATING)
     Route: 048
     Dates: start: 20020613
  3. TRAZODONE HCL [Concomitant]
     Route: 048
  4. AVANDIA [Concomitant]
     Dosage: 4-8 MG
     Route: 048
  5. PROMETHAZINE HCL [Concomitant]
     Route: 048
  6. ACETAMINOPHEN AND HYDROCODONE BITARTRATE [Concomitant]
     Dosage: 5/500-7.5/500 MG
     Route: 048
  7. KLONOPIN [Concomitant]
     Route: 048
  8. LYRICA [Concomitant]
     Route: 048
  9. METHADONE HCL [Concomitant]
     Dosage: 10 MG/ 5 ML
     Route: 048
  10. HUMULIN 70/30 [Concomitant]
     Route: 048
  11. LISINOPRIL [Concomitant]
     Route: 048
  12. AMITRIPTYLINE HCL [Concomitant]
     Route: 048
  13. LANTUS [Concomitant]
     Dosage: 100 UNITS/ML
     Route: 048
  14. NEXIUM [Concomitant]
     Route: 048
  15. ZOLOFT [Concomitant]
     Route: 048
  16. NEURONTIN [Concomitant]
     Route: 048

REACTIONS (3)
  - DIABETIC GASTROPARESIS [None]
  - DIABETIC NEUROPATHY [None]
  - TYPE 2 DIABETES MELLITUS [None]
